FAERS Safety Report 18570361 (Version 1)
Quarter: 2020Q4

REPORT INFORMATION
  Report Type: Report from Study
  Country: US (occurrence: US)
  Receive Date: 20201202
  Receipt Date: 20201202
  Transmission Date: 20210114
  Serious: Yes (Other)
  Sender: FDA-Public Use
  Company Number: US-GW PHARMA-201603USGW0150

PATIENT

DRUGS (9)
  1. SYNTHROID [Concomitant]
     Active Substance: LEVOTHYROXINE SODIUM
     Indication: HYPOTHYROIDISM
     Dosage: 75 MICROGRAM, QD
     Route: 048
     Dates: start: 1992
  2. ATIVAN [Concomitant]
     Active Substance: LORAZEPAM
     Indication: SEIZURE
     Dosage: 0.5 MILLIGRAM, BID
     Route: 048
     Dates: start: 2013
  3. CARBATROL [Concomitant]
     Active Substance: CARBAMAZEPINE
     Indication: LENNOX-GASTAUT SYNDROME
     Dosage: 600 MILLIGRAM, TID
     Route: 048
     Dates: start: 1989
  4. EPIDIOLEX [Suspect]
     Active Substance: CANNABIDIOL
     Indication: LENNOX-GASTAUT SYNDROME
     Dosage: 2.5 MG/KG, 230 MILLIGRAM, QD
     Route: 048
     Dates: start: 20160309, end: 20160311
  5. TRICOR [Concomitant]
     Active Substance: FENOFIBRATE
     Indication: HYPERLIPIDAEMIA
     Dosage: 145 MILLIGRAM, QD
     Route: 048
     Dates: start: 2013
  6. ZYPREXA [Concomitant]
     Active Substance: OLANZAPINE
     Indication: BEHAVIOUR DISORDER
     Dosage: 5 MILLIGRAM, BID
     Route: 048
     Dates: start: 20160126
  7. DEPAKOTE [Concomitant]
     Active Substance: DIVALPROEX SODIUM
     Indication: LENNOX-GASTAUT SYNDROME
     Dosage: 500 MILLIGRAM, BID
     Route: 048
     Dates: start: 20150701
  8. ATIVAN [Concomitant]
     Active Substance: LORAZEPAM
     Dosage: 1 MILLIGRAM, PRN
     Route: 048
     Dates: start: 2013
  9. ZYPREXA [Concomitant]
     Active Substance: OLANZAPINE
     Indication: AGITATION

REACTIONS (1)
  - Behaviour disorder [Recovered/Resolved]

NARRATIVE: CASE EVENT DATE: 20160311
